FAERS Safety Report 8315466-4 (Version None)
Quarter: 2012Q2

REPORT INFORMATION
  Report Type: 
  Country: None (occurrence: None)
  Receive Date: 20120426
  Receipt Date: 20120420
  Transmission Date: 20120825
  Serious: Yes (Life-Threatening, Hospitalization)
  Sender: FDA-Public Use
  Company Number: BR-ABBOTT-12P-020-0928192-00

PATIENT
  Age: 55 Year
  Sex: Male

DRUGS (7)
  1. ATACAND HCT [Suspect]
     Indication: HYPERTENSION
     Dosage: 16MG/12.5MG
     Route: 048
     Dates: end: 20120306
  2. ASPIRIN [Concomitant]
     Indication: PRODUCT USED FOR UNKNOWN INDICATION
     Route: 048
  3. ISOSORBIDE MONONITRATE [Concomitant]
     Indication: PRODUCT USED FOR UNKNOWN INDICATION
  4. BRILINTA [Suspect]
     Indication: INFARCTION
     Route: 048
     Dates: start: 20120301
  5. OMEPRAZOLE [Concomitant]
     Indication: PROPHYLAXIS
  6. DIVELOL [Concomitant]
     Indication: PRODUCT USED FOR UNKNOWN INDICATION
  7. OMEPRAZOLE [Concomitant]
     Indication: GASTRIC DISORDER

REACTIONS (2)
  - CARDIAC ARREST [None]
  - MYOCARDIAL INFARCTION [None]
